FAERS Safety Report 14624815 (Version 7)
Quarter: 2018Q3

REPORT INFORMATION
  Report Type: Spontaneous
  Country: US (occurrence: US)
  Receive Date: 20180312
  Receipt Date: 20180802
  Transmission Date: 20181010
  Serious: No
  Sender: FDA-Public Use
  Company Number: US-PFIZER INC-2018100445

PATIENT
  Age: 65 Year
  Sex: Female
  Weight: 52 kg

DRUGS (3)
  1. IBRANCE [Suspect]
     Active Substance: PALBOCICLIB
     Indication: BREAST CANCER METASTATIC
     Dosage: 125 MG, CYCLIC (125MG ONCE A DAY FOR 21 DAYS AND OFF FOR 7 DAYS)
     Route: 048
     Dates: start: 2018, end: 2018
  2. FULVESTRANT. [Concomitant]
     Active Substance: FULVESTRANT
     Indication: HORMONE LEVEL ABNORMAL
     Dosage: UNK, MONTHLY (ONCE A MONTH)
  3. IBRANCE [Suspect]
     Active Substance: PALBOCICLIB
     Dosage: 100 MG, CYCLIC (ONCE PER DAY FOR 21 DAYS AND REST ONE WEEKS), TAKE IT WITH MY BREAKFAST IN MORNING
     Route: 048
     Dates: start: 2018, end: 2018

REACTIONS (13)
  - Tremor [Unknown]
  - Pain [Unknown]
  - Confusional state [Unknown]
  - Dysphonia [Unknown]
  - Fatigue [Unknown]
  - White blood cell count decreased [Not Recovered/Not Resolved]
  - Urinary tract infection [Not Recovered/Not Resolved]
  - Pollakiuria [Recovered/Resolved]
  - Nasopharyngitis [Unknown]
  - Skin exfoliation [Unknown]
  - Pruritus [Unknown]
  - Hair colour changes [Not Recovered/Not Resolved]
  - Full blood count decreased [Unknown]

NARRATIVE: CASE EVENT DATE: 2018
